FAERS Safety Report 17529360 (Version 5)
Quarter: 2020Q2

REPORT INFORMATION
  Report Type: Spontaneous
  Country: ES (occurrence: ES)
  Receive Date: 20200311
  Receipt Date: 20200622
  Transmission Date: 20200713
  Serious: Yes (Life-Threatening, Hospitalization, Other)
  Sender: FDA-Public Use
  Company Number: ES-MYLANLABS-2020M1026350

PATIENT
  Age: 53 Year
  Sex: Female
  Weight: 67 kg

DRUGS (20)
  1. LOPINAVIR/RITONAVIR [Suspect]
     Active Substance: LOPINAVIR\RITONAVIR
     Indication: HIV INFECTION
     Dosage: 400/100 MG, BID (TWICE DAILY)
     Route: 065
     Dates: start: 201801, end: 2018
  2. LOPINAVIR/RITONAVIR [Suspect]
     Active Substance: LOPINAVIR\RITONAVIR
     Indication: ANTIRETROVIRAL THERAPY
     Dosage: UNK
  3. TRACLEER [Interacting]
     Active Substance: BOSENTAN
     Indication: PULMONARY ARTERIAL HYPERTENSION
     Dosage: 125 MILLIGRAM, BID
     Route: 065
     Dates: start: 201801, end: 2018
  4. TRACLEER [Interacting]
     Active Substance: BOSENTAN
     Dosage: 125 MILLIGRAM, BID (RE-INTRODUCED)
     Route: 065
     Dates: start: 20180409, end: 201809
  5. RALTEGRAVIR. [Interacting]
     Active Substance: RALTEGRAVIR
     Indication: HIV INFECTION
     Dosage: 800 MILLIGRAM, QD
     Route: 065
     Dates: start: 20180122, end: 20181004
  6. RALTEGRAVIR. [Interacting]
     Active Substance: RALTEGRAVIR
     Indication: HEPATITIS C
     Dosage: UNK
     Dates: start: 201801
  7. RITONAVIR. [Concomitant]
     Active Substance: RITONAVIR
  8. COBICISTAT W/DARUNAVIR [Interacting]
     Active Substance: COBICISTAT\DARUNAVIR ETHANOLATE
     Indication: HIV INFECTION
     Dosage: COBICISTAT/DARUNAVIR 150/800MG [DARUNAVIR/COBICISTAT]
     Route: 065
     Dates: start: 201804, end: 201809
  9. RILPIVIRINE [Suspect]
     Active Substance: RILPIVIRINE
     Indication: HIV INFECTION
     Dosage: 25 MILLIGRAM, QD
     Route: 065
     Dates: start: 201801, end: 201804
  10. LOPINAVIR W/RITONAVIR [Concomitant]
     Active Substance: LOPINAVIR\RITONAVIR
     Dosage: UNK UNK, BID
  11. TADALAFIL. [Suspect]
     Active Substance: TADALAFIL
     Indication: PULMONARY ARTERIAL HYPERTENSION
     Dosage: 20 MILLIGRAM, QD
     Route: 065
     Dates: start: 201801, end: 2018
  12. TADALAFIL. [Suspect]
     Active Substance: TADALAFIL
     Dosage: 20 MILLIGRAM, QD (RE-INTRODUCED)
     Route: 065
     Dates: start: 201804
  13. GLECAPREVIR;PIBRENTASVIR [Suspect]
     Active Substance: GLECAPREVIR\PIBRENTASVIR
     Indication: HEPATITIS C
     Dosage: 8 WEEK
     Route: 065
     Dates: start: 201801, end: 2018
  14. RILPIVIRINE [Suspect]
     Active Substance: RILPIVIRINE
     Indication: ANTIRETROVIRAL THERAPY
  15. ISENTRESS [Concomitant]
     Active Substance: RALTEGRAVIR POTASSIUM
     Indication: HIV INFECTION
     Dosage: UNK
     Route: 048
     Dates: start: 20180122, end: 20181004
  16. COBICISTAT W/DARUNAVIR [Interacting]
     Active Substance: COBICISTAT\DARUNAVIR ETHANOLATE
     Indication: HEPATITIS C
     Dosage: UNK (800/150 MG, QD)
     Dates: start: 20180501, end: 20181004
  17. COBICISTAT W/DARUNAVIR [Interacting]
     Active Substance: COBICISTAT\DARUNAVIR ETHANOLATE
     Indication: ANTIRETROVIRAL THERAPY
  18. RALTEGRAVIR. [Interacting]
     Active Substance: RALTEGRAVIR
     Indication: ANTIRETROVIRAL THERAPY
     Dosage: 400 MILLIGRAM, BID
  19. REZOLSTA [Concomitant]
     Active Substance: COBICISTAT\DARUNAVIR ETHANOLATE
     Indication: HIV INFECTION
     Dosage: UNK
     Route: 048
     Dates: start: 20180501, end: 20181004
  20. RALTEGRAVIR. [Interacting]
     Active Substance: RALTEGRAVIR
     Dosage: 800 UNK

REACTIONS (10)
  - Respiratory failure [Recovering/Resolving]
  - Fluid retention [Recovering/Resolving]
  - Drug resistance [Recovering/Resolving]
  - Gene mutation [Recovered/Resolved]
  - Toxicity to various agents [Recovering/Resolving]
  - Drug interaction [Recovering/Resolving]
  - Blood HIV RNA increased [Recovering/Resolving]
  - Cardiac failure congestive [Recovering/Resolving]
  - Cardiac failure [Recovering/Resolving]
  - Virologic failure [Recovering/Resolving]

NARRATIVE: CASE EVENT DATE: 2018
